FAERS Safety Report 11082127 (Version 1)
Quarter: 2015Q2

REPORT INFORMATION
  Report Type: Spontaneous
  Country: CA (occurrence: CA)
  Receive Date: 20150501
  Receipt Date: 20150501
  Transmission Date: 20150821
  Serious: Yes (Other)
  Sender: FDA-Public Use
  Company Number: CA-GLAXOSMITHKLINE-CA2015058219

PATIENT

DRUGS (1)
  1. NICOTINE. [Suspect]
     Active Substance: NICOTINE
     Dosage: DOSAGE FORM: UNSPECIFIED
     Route: 062

REACTIONS (2)
  - Drug dependence [Unknown]
  - Drug ineffective [Unknown]
